FAERS Safety Report 4586852-3 (Version None)
Quarter: 2005Q1

REPORT INFORMATION
  Report Type: 
  Country: None (occurrence: None)
  Receive Date: 20050215
  Receipt Date: 20050202
  Transmission Date: 20050727
  Serious: Yes (Death)
  Sender: FDA-Public Use
  Company Number: 2005024781

PATIENT
  Age: 10 Year
  Sex: Female
  Weight: 22 kg

DRUGS (2)
  1. UNASYN [Suspect]
     Indication: OTITIS MEDIA
     Dosage: 1040 MG (260 MG, 1 IN 6 HR) INTRAVENOUS
     Route: 042
     Dates: start: 20041203, end: 20041210
  2. UNASYN [Suspect]
     Indication: TYMPANIC MEMBRANE PERFORATION
     Dosage: 1040 MG (260 MG, 1 IN 6 HR) INTRAVENOUS
     Route: 042
     Dates: start: 20041203, end: 20041210

REACTIONS (1)
  - ADVERSE DRUG REACTION [None]
